FAERS Safety Report 7480614-5 (Version None)
Quarter: 2011Q2

REPORT INFORMATION
  Report Type: 
  Country: None (occurrence: None)
  Receive Date: 20110504
  Receipt Date: 20110429
  Transmission Date: 20111010
  Serious: Yes (Death)
  Sender: FDA-Public Use
  Company Number: 2008-170662-NL

PATIENT
  Age: 32 Year
  Sex: Female

DRUGS (3)
  1. RANITIDINE [Concomitant]
  2. NUVARING [Suspect]
     Indication: PRODUCT USED FOR UNKNOWN INDICATION
     Dosage: 1 DF, QM, VAG
     Route: 067
     Dates: start: 20070530, end: 20071201
  3. ZOLOFT [Concomitant]

REACTIONS (12)
  - APNOEA [None]
  - PUPIL FIXED [None]
  - CEREBROVASCULAR ACCIDENT [None]
  - CARDIAC ARREST [None]
  - ELECTROLYTE IMBALANCE [None]
  - ACUTE MYOCARDIAL INFARCTION [None]
  - PULMONARY EMBOLISM [None]
  - LOSS OF CONSCIOUSNESS [None]
  - OVERDOSE [None]
  - DEEP VEIN THROMBOSIS [None]
  - ANOXIA [None]
  - AGITATION [None]
